FAERS Safety Report 22536040 (Version 1)
Quarter: 2023Q2

REPORT INFORMATION
  Report Type: Spontaneous
  Country: US (occurrence: US)
  Receive Date: 20230608
  Receipt Date: 20230608
  Transmission Date: 20230721
  Serious: Yes (Other)
  Sender: FDA-Public Use
  Company Number: US-MYLANLABS-2023M1060139

PATIENT
  Age: 58 Year
  Sex: Male

DRUGS (8)
  1. FLUCONAZOLE [Suspect]
     Active Substance: FLUCONAZOLE
     Indication: Gut fermentation syndrome
     Dosage: UNK
     Route: 065
     Dates: start: 202010, end: 202110
  2. NYSTATIN [Suspect]
     Active Substance: NYSTATIN
     Indication: Gut fermentation syndrome
     Dosage: UNK
     Route: 065
     Dates: start: 202010, end: 202110
  3. MICAFUNGIN [Suspect]
     Active Substance: MICAFUNGIN SODIUM
     Indication: Gut fermentation syndrome
     Dosage: UNK
     Route: 065
     Dates: start: 202010, end: 202110
  4. AMPHOTERICIN B [Suspect]
     Active Substance: AMPHOTERICIN B
     Indication: Gut fermentation syndrome
     Dosage: UNK
     Route: 048
     Dates: start: 202010, end: 202110
  5. BACILLUS SUBTILIS [Suspect]
     Active Substance: BACILLUS SUBTILIS
     Indication: Gut fermentation syndrome
     Dosage: UNK (RECEIVED FOR 15 DAYS)
     Route: 065
  6. PRUCALOPRIDE [Suspect]
     Active Substance: PRUCALOPRIDE
     Indication: Gut fermentation syndrome
     Dosage: UNK
     Route: 065
  7. LACTULOSE [Suspect]
     Active Substance: LACTULOSE
     Indication: Gut fermentation syndrome
     Dosage: UNK
     Route: 065
  8. UNDECYLENIC ACID [Suspect]
     Active Substance: UNDECYLENIC ACID
     Indication: Gut fermentation syndrome
     Dosage: UNK
     Route: 065
     Dates: start: 202202

REACTIONS (1)
  - Treatment failure [Unknown]
